FAERS Safety Report 22332404 (Version 1)
Quarter: 2023Q2

REPORT INFORMATION
  Report Type: Spontaneous
  Country: US (occurrence: None)
  Receive Date: 20230516
  Receipt Date: 20230516
  Transmission Date: 20230721
  Serious: No
  Sender: FDA-Public Use
  Company Number: None

PATIENT
  Age: 32 Year
  Sex: Male
  Weight: 83.25 kg

DRUGS (1)
  1. TYLENOL [Suspect]
     Active Substance: ACETAMINOPHEN
     Indication: Pyrexia
     Dosage: OTHER QUANTITY : 325 CAPSULE(S);?
     Route: 048
     Dates: start: 20230509, end: 20230509

REACTIONS (2)
  - Accidental overdose [None]
  - Product label confusion [None]

NARRATIVE: CASE EVENT DATE: 20230509
